FAERS Safety Report 21602153 (Version 4)
Quarter: 2023Q1

REPORT INFORMATION
  Report Type: Report from Study
  Country: US (occurrence: US)
  Receive Date: 20221116
  Receipt Date: 20230216
  Transmission Date: 20230417
  Serious: Yes (Other)
  Sender: FDA-Public Use
  Company Number: US-002147023-NVSC2022US254083

PATIENT
  Sex: Female

DRUGS (1)
  1. COSENTYX [Suspect]
     Active Substance: SECUKINUMAB
     Indication: Psoriasis
     Dosage: UNK
     Route: 065

REACTIONS (18)
  - Psoriatic arthropathy [Unknown]
  - Arthralgia [Unknown]
  - Pain [Unknown]
  - Skin disorder [Unknown]
  - Psoriasis [Unknown]
  - Stress [Unknown]
  - Back pain [Unknown]
  - Pain in extremity [Unknown]
  - Face injury [Unknown]
  - Neck pain [Unknown]
  - Spinal pain [Unknown]
  - Temporomandibular joint syndrome [Unknown]
  - Toothache [Unknown]
  - Poor quality sleep [Unknown]
  - Rebound psoriasis [Unknown]
  - Arthropathy [Unknown]
  - Drug ineffective [Unknown]
  - Fall [Unknown]
